FAERS Safety Report 21551103 (Version 1)
Quarter: 2022Q4

REPORT INFORMATION
  Report Type: Spontaneous
  Country: US (occurrence: None)
  Receive Date: 20221102
  Receipt Date: 20221102
  Transmission Date: 20230112
  Serious: Yes (Hospitalization)
  Sender: FDA-Public Use
  Company Number: None

PATIENT
  Sex: Female

DRUGS (7)
  1. VYNDAMAX [Suspect]
     Active Substance: TAFAMIDIS
     Indication: Amyloidosis senile
     Dosage: FREQUENCY : DAILY;?
     Route: 048
     Dates: start: 20220114
  2. DEMEROL [Concomitant]
     Active Substance: MEPERIDINE HYDROCHLORIDE
  3. MEPERIDINE AND RELATED [Concomitant]
  4. UNSPECIFIED INGREDIENT [Concomitant]
     Active Substance: UNSPECIFIED INGREDIENT
  5. ORGANIC [Concomitant]
  6. NITROGLYCER [Concomitant]
  7. PENICILLIN [Concomitant]
     Active Substance: PENICILLIN

REACTIONS (1)
  - Skin sensitisation [None]
